FAERS Safety Report 6788126-9 (Version None)
Quarter: 2010Q2

REPORT INFORMATION
  Report Type: 
  Country: None (occurrence: None)
  Receive Date: 20100623
  Receipt Date: 20080212
  Transmission Date: 20101027
  Serious: No
  Sender: FDA-Public Use
  Company Number: US-PFIZER INC-2008010469

PATIENT
  Age: 89 Year
  Sex: Female

DRUGS (2)
  1. XALATAN [Suspect]
     Indication: GLAUCOMA
  2. XAL-EASE [Suspect]

REACTIONS (2)
  - INCORRECT DOSE ADMINISTERED [None]
  - NASOPHARYNGITIS [None]
